FAERS Safety Report 6220233-1 (Version None)
Quarter: 2009Q2

REPORT INFORMATION
  Report Type: 
  Country: None (occurrence: None)
  Receive Date: 20090609
  Receipt Date: 20090526
  Transmission Date: 20091009
  Serious: Yes (Other)
  Sender: FDA-Public Use
  Company Number: US-ELI_LILLY_AND_COMPANY-US200905005293

PATIENT
  Sex: Female

DRUGS (9)
  1. CYMBALTA [Suspect]
     Indication: FIBROMYALGIA
     Dosage: 60 MG, UNK
  2. CYMBALTA [Suspect]
     Dosage: 90 MG, UNK
     Dates: start: 20090523
  3. COPAXONE [Concomitant]
  4. LYRICA [Concomitant]
  5. COZAAR [Concomitant]
  6. DAPSONE [Concomitant]
  7. ARICEPT [Concomitant]
     Indication: MEMORY IMPAIRMENT
  8. DARVOCET [Concomitant]
  9. LORTAB [Concomitant]

REACTIONS (6)
  - BRAIN SCAN ABNORMAL [None]
  - COELIAC DISEASE [None]
  - DEMYELINATION [None]
  - INTERVERTEBRAL DISC DEGENERATION [None]
  - OPTIC NEURITIS [None]
  - SARCOIDOSIS [None]
